FAERS Safety Report 7888427-7 (Version None)
Quarter: 2011Q4

REPORT INFORMATION
  Report Type: 
  Country: None (occurrence: None)
  Receive Date: 20111103
  Receipt Date: 20111025
  Transmission Date: 20120403
  Serious: Yes (Hospitalization, Other)
  Sender: FDA-Public Use
  Company Number: PHHY2011VE95711

PATIENT
  Sex: Female

DRUGS (11)
  1. BERODUAL [Concomitant]
     Dosage: 0.02 MG, UNK
  2. WARFARIN SODIUM [Concomitant]
     Indication: THROMBOSIS
     Dosage: 5 MG, QD
  3. ZOLEDRONOC ACID [Suspect]
     Indication: OSTEOPOROSIS
     Dosage: 5 MG, ONCE A YEAR
     Route: 042
     Dates: start: 20100501
  4. DOLAK [Concomitant]
     Indication: PAIN
  5. ROCALTROL [Concomitant]
     Dosage: 0.5 MG, QD
  6. ZOLEDRONOC ACID [Suspect]
     Dosage: 5 MG, ONCE A YEAR
     Route: 042
     Dates: start: 20110602
  7. TRAMADOL HCL [Concomitant]
     Dosage: UNK UKN, QD
  8. PREDNISONE [Concomitant]
     Indication: ASTHMA
     Dosage: 5 MG, QD
  9. ALPRAZOLAM [Concomitant]
     Dosage: 0.5 MG, UNK
  10. BUDESONIDE [Concomitant]
  11. HEPAFOL CON B-12 [Concomitant]
     Dosage: 15 UG, UNK

REACTIONS (2)
  - THROMBOSIS [None]
  - ASTHMATIC CRISIS [None]
